FAERS Safety Report 18799888 (Version 1)
Quarter: 2021Q1

REPORT INFORMATION
  Report Type: Report from Study
  Country: TN (occurrence: TN)
  Receive Date: 20210128
  Receipt Date: 20210128
  Transmission Date: 20210419
  Serious: Yes (Hospitalization)
  Sender: FDA-Public Use
  Company Number: TN-MYLANLABS-2021M1004969

PATIENT
  Age: 46 Year
  Sex: Female

DRUGS (1)
  1. EPIRUBICIN [Suspect]
     Active Substance: EPIRUBICIN
     Indication: BREAST CANCER STAGE IV
     Dosage: UNK
     Route: 042

REACTIONS (3)
  - Cardiotoxicity [Recovering/Resolving]
  - Acute pulmonary oedema [Recovered/Resolved]
  - Cardiac failure [Recovering/Resolving]
